FAERS Safety Report 23743717 (Version 1)
Quarter: 2024Q2

REPORT INFORMATION
  Report Type: Spontaneous
  Country: CA (occurrence: CA)
  Receive Date: 20240415
  Receipt Date: 20240415
  Transmission Date: 20240715
  Serious: Yes (Hospitalization, Other)
  Sender: FDA-Public Use
  Company Number: CA-ANIPHARMA-2024-CA-002066

PATIENT
  Age: 28 Year
  Sex: Male
  Weight: 156 kg

DRUGS (12)
  1. CANDESARTAN CILEXETIL [Suspect]
     Active Substance: CANDESARTAN CILEXETIL
     Indication: Product used for unknown indication
     Route: 048
  2. PREDNISONE [Concomitant]
     Active Substance: PREDNISONE
  3. SERTRALINE [Concomitant]
     Active Substance: SERTRALINE HYDROCHLORIDE
  4. VITAMIN D3 [Concomitant]
     Active Substance: CHOLECALCIFEROL
  5. INFLECTRA [Suspect]
     Active Substance: INFLIXIMAB-DYYB
     Dosage: 666 MG UNK/667 MG UNK/690 MG UNK/766.5 MGUNK/5 MG/KG Q4WK/1000 MG (7.5 MG/KG, Q4WKS)/1238 MG (7.5MG/
     Route: 042
     Dates: start: 20240227
  6. ABILIFY [Concomitant]
     Active Substance: ARIPIPRAZOLE
  7. AMLODIPINE [Concomitant]
     Active Substance: AMLODIPINE BESYLATE
  8. DOXYLAMINE [Concomitant]
     Active Substance: DOXYLAMINE
  9. FOLIC ACID [Concomitant]
     Active Substance: FOLIC ACID
  10. IMODIUM [Concomitant]
     Active Substance: LOPERAMIDE HYDROCHLORIDE
  11. LASIX [Concomitant]
     Active Substance: FUROSEMIDE
  12. METHOTREXATE [Concomitant]
     Active Substance: METHOTREXATE

REACTIONS (63)
  - Hypertension [Unknown]
  - Osteomyelitis [Unknown]
  - Skin infection [Unknown]
  - Tooth infection [Unknown]
  - Cardiac failure congestive [Unknown]
  - Condition aggravated [Unknown]
  - Localised infection [Unknown]
  - Therapeutic response shortened [Unknown]
  - Drug ineffective [Unknown]
  - Drug resistance [Unknown]
  - Nasopharyngitis [Unknown]
  - Dizziness [Unknown]
  - Weight increased [Unknown]
  - Arthralgia [Unknown]
  - Poor venous access [Unknown]
  - Blister [Unknown]
  - Joint swelling [Unknown]
  - Mouth swelling [Unknown]
  - Foreign body in mouth [Unknown]
  - Pain [Unknown]
  - Axillary mass [Unknown]
  - Anaemia [Unknown]
  - Inflammation [Unknown]
  - Swelling [Unknown]
  - Erythema [Unknown]
  - Infected cyst [Unknown]
  - Abscess [Unknown]
  - Purulent discharge [Unknown]
  - COVID-19 [Unknown]
  - Malaise [Unknown]
  - Rhinorrhoea [Unknown]
  - Nasal congestion [Unknown]
  - Chest discomfort [Unknown]
  - Blood pressure diastolic decreased [Unknown]
  - Heart rate increased [Unknown]
  - Nausea [Unknown]
  - Pallor [Unknown]
  - Tachypnoea [Unknown]
  - Cold sweat [Unknown]
  - Hyperhidrosis [Unknown]
  - Ear discomfort [Unknown]
  - Ear infection [Unknown]
  - Musculoskeletal stiffness [Unknown]
  - Headache [Unknown]
  - Brain fog [Unknown]
  - Amnesia [Unknown]
  - Vitamin D decreased [Unknown]
  - Vomiting [Unknown]
  - Infected bite [Unknown]
  - Dysuria [Unknown]
  - Paraesthesia [Unknown]
  - Hypoaesthesia [Unknown]
  - C-reactive protein increased [Unknown]
  - Dyspnoea exertional [Unknown]
  - Fatigue [Unknown]
  - Oedema peripheral [Unknown]
  - Off label use [Unknown]
  - Intentional product use issue [Unknown]
  - Incorrect dose administered [Unknown]
  - Inappropriate schedule of product administration [Unknown]
  - Dyspnoea [Unknown]
  - Chest pain [Unknown]
  - Peripheral swelling [Unknown]

NARRATIVE: CASE EVENT DATE: 20220204
